FAERS Safety Report 23279188 (Version 4)
Quarter: 2024Q1

REPORT INFORMATION
  Report Type: Spontaneous
  Country: US (occurrence: US)
  Receive Date: 20231209
  Receipt Date: 20240320
  Transmission Date: 20240410
  Serious: No
  Sender: FDA-Public Use
  Company Number: US-BRISTOL-MYERS SQUIBB COMPANY-2023-178485

PATIENT
  Age: 62 Year
  Sex: Female

DRUGS (1)
  1. ORENCIA [Suspect]
     Active Substance: ABATACEPT
     Indication: Rheumatoid arthritis
     Route: 058
     Dates: start: 202311

REACTIONS (12)
  - Joint swelling [Unknown]
  - Arthralgia [Unknown]
  - Headache [Recovered/Resolved]
  - Urinary tract infection [Recovered/Resolved]
  - Fatigue [Unknown]
  - Memory impairment [Unknown]
  - Alopecia [Unknown]
  - Visual impairment [Unknown]
  - Dry throat [Unknown]
  - Irritability [Unknown]
  - Dizziness postural [Unknown]
  - Decreased appetite [Unknown]
